FAERS Safety Report 17323219 (Version 1)
Quarter: 2020Q1

REPORT INFORMATION
  Report Type: Other
  Country: US (occurrence: US)
  Receive Date: 20200127
  Receipt Date: 20200127
  Transmission Date: 20200409
  Serious: No
  Sender: FDA-Public Use
  Company Number: US-ACORDA-ACO_162826_2019

PATIENT
  Sex: Female

DRUGS (1)
  1. AMPYRA [Suspect]
     Active Substance: DALFAMPRIDINE
     Indication: DEMYELINATION
     Dosage: 10 MILLIGRAM, Q 12 HRS
     Route: 048
     Dates: start: 20191119

REACTIONS (2)
  - Off label use [Unknown]
  - Pruritus [Recovered/Resolved]
